FAERS Safety Report 18645793 (Version 1)
Quarter: 2020Q4

REPORT INFORMATION
  Report Type: Spontaneous
  Country: US (occurrence: US)
  Receive Date: 20201221
  Receipt Date: 20201221
  Transmission Date: 20210114
  Serious: Yes (Other)
  Sender: FDA-Public Use
  Company Number: US-PURDUE-USA-2020-0166317

PATIENT
  Sex: Male

DRUGS (4)
  1. OXYCODONE HCL TABLETS (RHODES 91-490) [Suspect]
     Active Substance: OXYCODONE HYDROCHLORIDE
     Indication: PRODUCT USED FOR UNKNOWN INDICATION
     Dosage: UNK
     Route: 048
  2. HYDROCODONE BITARTRATE AND ACETAMINOPHEN [Suspect]
     Active Substance: ACETAMINOPHEN\HYDROCODONE BITARTRATE
     Indication: PRODUCT USED FOR UNKNOWN INDICATION
     Dosage: UNK
     Route: 048
  3. OXYCODONE/ ACETAMINOPHEN TABLETS [Suspect]
     Active Substance: ACETAMINOPHEN\OXYCODONE HYDROCHLORIDE
     Indication: PRODUCT USED FOR UNKNOWN INDICATION
     Dosage: UNK
     Route: 048
  4. HYDROMORPHONE TABLET (RHODES) [Suspect]
     Active Substance: HYDROMORPHONE
     Indication: PRODUCT USED FOR UNKNOWN INDICATION
     Dosage: UNK
     Route: 048

REACTIONS (28)
  - Lip swelling [Unknown]
  - Sleep disorder [Unknown]
  - Palpitations [Unknown]
  - Back pain [Unknown]
  - Learning disability [Unknown]
  - Muscle spasms [Unknown]
  - Musculoskeletal stiffness [Unknown]
  - Hypersensitivity [Unknown]
  - Erythema [Unknown]
  - Abdominal discomfort [Unknown]
  - Muscular weakness [Unknown]
  - Weight decreased [Unknown]
  - Drug dependence [Unknown]
  - Blister [Unknown]
  - Pharyngeal swelling [Unknown]
  - Developmental delay [Unknown]
  - Dysphonia [Unknown]
  - Swollen tongue [Unknown]
  - Tachycardia [Unknown]
  - Drug withdrawal headache [Unknown]
  - Libido decreased [Unknown]
  - Urticaria [Unknown]
  - Pruritus [Unknown]
  - Dry mouth [Unknown]
  - Hyperhidrosis [Unknown]
  - Thinking abnormal [Unknown]
  - Choluria [Unknown]
  - Dysuria [Unknown]
